FAERS Safety Report 15317374 (Version 4)
Quarter: 2019Q1

REPORT INFORMATION
  Report Type: Report from Study
  Country: GB (occurrence: GB)
  Receive Date: 20180824
  Receipt Date: 20190327
  Transmission Date: 20190417
  Serious: Yes (Life-Threatening, Hospitalization)
  Sender: FDA-Public Use
  Company Number: GB-ASTRAZENECA-2018SF04731

PATIENT
  Age: 55 Year
  Sex: Male
  Weight: 58.9 kg

DRUGS (22)
  1. OLAPARIB. [Suspect]
     Active Substance: OLAPARIB
     Indication: SQUAMOUS CELL CARCINOMA OF HEAD AND NECK
     Route: 048
     Dates: start: 20180205, end: 20180321
  2. PARACETAMOL [Concomitant]
     Active Substance: ACETAMINOPHEN
     Indication: OROPHARYNGEAL PAIN
     Route: 048
     Dates: start: 2015
  3. TRAMADOL. [Concomitant]
     Active Substance: TRAMADOL
     Indication: ARTHRITIS
     Route: 048
     Dates: start: 2015
  4. MORPHINE [Concomitant]
     Active Substance: MORPHINE
     Dosage: 05 - 10 MLS AS REQUIRED UPTO 4 HOURLY
     Route: 048
     Dates: start: 20180302, end: 20180323
  5. HYDROGEN PEROXIDE. [Concomitant]
     Active Substance: HYDROGEN PEROXIDE
     Indication: INFECTION PROPHYLAXIS
     Dosage: AS REQUIRED
     Route: 048
     Dates: start: 20180212
  6. LANSOPRAZOLE. [Concomitant]
     Active Substance: LANSOPRAZOLE
     Indication: GASTROOESOPHAGEAL REFLUX DISEASE
     Route: 048
     Dates: start: 2015
  7. DOUBLEBASE [Concomitant]
     Active Substance: ISOPROPYL MYRISTATE\PARAFFIN
     Indication: RADIOTHERAPY
     Route: 061
     Dates: start: 20180212
  8. FORTSIP [Concomitant]
     Indication: SUPPLEMENTATION THERAPY
     Dates: start: 20180221, end: 20180312
  9. LIDOCAINE. [Concomitant]
     Active Substance: LIDOCAINE
     Indication: OROPHARYNGEAL PAIN
     Dosage: AS REQUIRED
     Route: 048
     Dates: start: 20180212
  10. SODIUM BICARBONATE. [Concomitant]
     Active Substance: SODIUM BICARBONATE
     Indication: INFECTION PROPHYLAXIS
     Dosage: AS REQUIRED
     Route: 048
     Dates: start: 20180212
  11. BENZYDAMINE HYDROCHLORIDE [Concomitant]
     Active Substance: BENZYDAMINE HYDROCHLORIDE
     Indication: OROPHARYNGEAL PAIN
     Route: 048
     Dates: start: 20180212
  12. RADIOTHERAPY [Suspect]
     Active Substance: RADIATION THERAPY
     Indication: SQUAMOUS CELL CARCINOMA OF HEAD AND NECK
     Dosage: 31 NUMBER OF FRACTIONS, DOSE PRIOR TO ONSET 62.0GY
     Route: 065
     Dates: start: 20180212
  13. PARACETAMOL [Concomitant]
     Active Substance: ACETAMINOPHEN
     Indication: ARTHRITIS
     Route: 048
     Dates: start: 2015
  14. LORAZEPAM. [Concomitant]
     Active Substance: LORAZEPAM
     Indication: ANXIETY
     Route: 048
     Dates: start: 20180213
  15. CISPLATIN. [Suspect]
     Active Substance: CISPLATIN
     Indication: SQUAMOUS CELL CARCINOMA OF HEAD AND NECK
     Dosage: 35 MG/ML DAY ONE EVERY WEEKLY CYCLE35MG/ML
     Route: 042
     Dates: start: 20180212, end: 20180328
  16. TRAMADOL. [Concomitant]
     Active Substance: TRAMADOL
     Indication: OROPHARYNGEAL PAIN
     Route: 048
     Dates: start: 2015
  17. CARBOPLATIN. [Concomitant]
     Active Substance: CARBOPLATIN
     Indication: SECRETION DISCHARGE
     Route: 048
     Dates: start: 20171212
  18. MORPHINE [Concomitant]
     Active Substance: MORPHINE
     Dosage: 2.5 MLS UPTO 4 HOURLY
     Route: 048
     Dates: start: 20180323
  19. LORAZEPAM. [Concomitant]
     Active Substance: LORAZEPAM
     Indication: RADIOTHERAPY
     Route: 065
     Dates: start: 20180213
  20. NAPROXEN. [Concomitant]
     Active Substance: NAPROXEN
     Indication: ARTHRITIS
     Route: 048
     Dates: start: 2015
  21. AMITRIPTYLINE [Concomitant]
     Active Substance: AMITRIPTYLINE
     Indication: ARTHRITIS
     Route: 048
     Dates: start: 2000
  22. LIDOCAINE. [Concomitant]
     Active Substance: LIDOCAINE
     Route: 061
     Dates: start: 20180309

REACTIONS (2)
  - Stomatitis [Not Recovered/Not Resolved]
  - Hypokalaemia [Recovered/Resolved]

NARRATIVE: CASE EVENT DATE: 20180801
